FAERS Safety Report 23101268 (Version 1)
Quarter: 2023Q4

REPORT INFORMATION
  Report Type: Spontaneous
  Country: CN (occurrence: CN)
  Receive Date: 20231024
  Receipt Date: 20231024
  Transmission Date: 20240110
  Serious: Yes (Other)
  Sender: FDA-Public Use
  Company Number: CN-PFIZER INC-PV202300174444

PATIENT
  Age: 97 Year
  Sex: Male
  Weight: 50 kg

DRUGS (1)
  1. NIRMATRELVIR\RITONAVIR [Suspect]
     Active Substance: NIRMATRELVIR\RITONAVIR
     Indication: Coronavirus infection
     Dosage: 0.150 G, 1X/DAY
     Route: 048
     Dates: start: 20231008, end: 20231011

REACTIONS (5)
  - Depressed level of consciousness [Recovered/Resolved]
  - Euphoric mood [Recovered/Resolved]
  - Dizziness [Unknown]
  - Headache [Unknown]
  - Abnormal behaviour [Unknown]

NARRATIVE: CASE EVENT DATE: 20231009
